FAERS Safety Report 9407878 (Version 1)
Quarter: 2013Q3

REPORT INFORMATION
  Report Type: Spontaneous
  Country: JP (occurrence: JP)
  Receive Date: 20130718
  Receipt Date: 20130718
  Transmission Date: 20140515
  Serious: Yes (Hospitalization, Other)
  Sender: FDA-Public Use
  Company Number: JP-BAYER-2013-084463

PATIENT
  Age: 79 Year
  Sex: Female

DRUGS (3)
  1. ACETYLSALICYLIC ACID({=100 MG) [Suspect]
     Dosage: UNK
     Route: 048
  2. LOXONIN [Suspect]
     Indication: BACK PAIN
     Dosage: UNK
     Route: 062
     Dates: start: 201209
  3. KAKKONTOU [Suspect]
     Indication: NASOPHARYNGITIS
     Dosage: UNK
     Route: 048
     Dates: start: 201212

REACTIONS (5)
  - Laryngeal oedema [None]
  - Drug intolerance [None]
  - Respiratory distress [None]
  - Palatal oedema [None]
  - Swollen tongue [None]
